FAERS Safety Report 16236083 (Version 2)
Quarter: 2019Q2

REPORT INFORMATION
  Report Type: Spontaneous
  Country: IT (occurrence: IT)
  Receive Date: 20190425
  Receipt Date: 20190521
  Transmission Date: 20190711
  Serious: Yes (Other)
  Sender: FDA-Public Use
  Company Number: IT-AUROBINDO-AUR-APL-2019-021538

PATIENT

DRUGS (5)
  1. SOLDESAM [Concomitant]
     Active Substance: DEXAMETHASONE
     Indication: PRODUCT USED FOR UNKNOWN INDICATION
     Dosage: 1 DOSAGE FORM
     Route: 042
     Dates: start: 20180129, end: 20180129
  2. CARBOPLATIN AUROBINDO CONCENTRATE FOR SOLUTION FOR INFUSION10MG/ML [Suspect]
     Active Substance: CARBOPLATIN
     Indication: CHEMOTHERAPY
     Dosage: 110 MILLIGRAM, TOTAL
     Route: 042
     Dates: start: 20180129, end: 20180129
  3. TRIMETON [Concomitant]
     Active Substance: CHLORPHENIRAMINE MALEATE
     Indication: PRODUCT USED FOR UNKNOWN INDICATION
     Dosage: 1 DOSAGE FORM
     Route: 042
     Dates: start: 20180129, end: 20180129
  4. ZOFRAN [Concomitant]
     Active Substance: ONDANSETRON HYDROCHLORIDE
     Indication: PRODUCT USED FOR UNKNOWN INDICATION
     Dosage: 1 DOSAGE FORM
     Route: 042
     Dates: start: 20180129, end: 20180129
  5. PACLITAXEL. [Concomitant]
     Active Substance: PACLITAXEL
     Indication: PRODUCT USED FOR UNKNOWN INDICATION
     Dosage: 70 MILLIGRAM
     Route: 042
     Dates: start: 20180129, end: 20180129

REACTIONS (4)
  - Hypersensitivity [Recovered/Resolved]
  - Hyperhidrosis [Recovered/Resolved]
  - Pruritus [Recovered/Resolved]
  - Dyspnoea [Recovered/Resolved]

NARRATIVE: CASE EVENT DATE: 20180129
